FAERS Safety Report 7173990 (Version 4)
Quarter: 2013Q1

REPORT INFORMATION
  Report Type: Spontaneous
  Country: SE (occurrence: SE)
  Receive Date: 20091111
  Receipt Date: 20130328
  Transmission Date: 20140127
  Serious: Yes (Other)
  Sender: FDA-Public Use
  Company Number: SE-PFIZER INC-2009290845

PATIENT
  Age: 32 Year
  Sex: Male

DRUGS (2)
  1. LYRICA [Suspect]
     Dosage: 150 MG, 1X/DAY
     Route: 042
     Dates: start: 2008
  2. STILNOCT [Suspect]
     Dosage: UNK

REACTIONS (1)
  - Drug abuse [Not Recovered/Not Resolved]
